FAERS Safety Report 9487050 (Version 2)
Quarter: 2013Q3

REPORT INFORMATION
  Report Type: Report from Study
  Country: GB (occurrence: GB)
  Receive Date: 20130829
  Receipt Date: 20130829
  Transmission Date: 20140515
  Serious: Yes (Death, Hospitalization)
  Sender: FDA-Public Use
  Company Number: PHHO2010GB13175

PATIENT
  Age: 71 Year
  Sex: Male

DRUGS (2)
  1. ALISKIREN [Suspect]
     Indication: CARDIOVASCULAR DISORDER
     Route: 048
     Dates: start: 20100715, end: 20100831
  2. ALISKIREN [Suspect]
     Route: 048
     Dates: start: 20101011, end: 20110112

REACTIONS (9)
  - Dyspnoea [Recovered/Resolved]
  - Pneumonia aspiration [Fatal]
  - Hypoglycaemia [Recovered/Resolved]
  - Non-cardiac chest pain [Recovered/Resolved]
  - Blood creatinine increased [Recovered/Resolved]
  - Ischaemic stroke [Not Recovered/Not Resolved]
  - Disease progression [Unknown]
  - Bronchopneumonia [Fatal]
  - Cerebrovascular accident [Fatal]
